FAERS Safety Report 12173345 (Version 6)
Quarter: 2016Q2

REPORT INFORMATION
  Report Type: Report from Study
  Country: US (occurrence: US)
  Receive Date: 20160311
  Receipt Date: 20160617
  Transmission Date: 20160815
  Serious: Yes (Death, Hospitalization)
  Sender: FDA-Public Use
  Company Number: US-ACTELION-A-US2016-132643

PATIENT
  Age: 54 Year
  Sex: Female

DRUGS (13)
  1. REMODULIN [Concomitant]
     Active Substance: TREPROSTINIL
  2. ACIPHEX [Concomitant]
     Active Substance: RABEPRAZOLE SODIUM
  3. RIOCIGUAT [Concomitant]
     Active Substance: RIOCIGUAT
  4. MYCOPHENOLATE [Concomitant]
     Active Substance: MYCOPHENOLIC ACID
  5. SAVELLA [Concomitant]
     Active Substance: MILNACIPRAN HYDROCHLORIDE
  6. TRAMADOL. [Concomitant]
     Active Substance: TRAMADOL
  7. PLAQUENIL [Concomitant]
     Active Substance: HYDROXYCHLOROQUINE SULFATE
  8. PREDNISONE. [Concomitant]
     Active Substance: PREDNISONE
  9. TRACLEER [Suspect]
     Active Substance: BOSENTAN
     Indication: PULMONARY ARTERIAL HYPERTENSION
     Dosage: 125 MG, BID
     Route: 048
     Dates: start: 20090118, end: 20160527
  10. QUESTRAN [Concomitant]
     Active Substance: CHOLESTYRAMINE
  11. TACROLIMUS. [Concomitant]
     Active Substance: TACROLIMUS
  12. REVATIO [Concomitant]
     Active Substance: SILDENAFIL CITRATE
  13. MELOXICAM. [Concomitant]
     Active Substance: MELOXICAM

REACTIONS (5)
  - Blood pressure abnormal [Recovered/Resolved]
  - Peripheral swelling [Not Recovered/Not Resolved]
  - Disease progression [Fatal]
  - Urinary tract infection [Recovered/Resolved]
  - Ascites [Not Recovered/Not Resolved]

NARRATIVE: CASE EVENT DATE: 20160225
